FAERS Safety Report 24028440 (Version 1)
Quarter: 2024Q2

REPORT INFORMATION
  Report Type: Spontaneous
  Country: US (occurrence: None)
  Receive Date: 20240628
  Receipt Date: 20240628
  Transmission Date: 20240715
  Serious: Yes (Hospitalization)
  Sender: FDA-Public Use
  Company Number: None

PATIENT
  Sex: Female
  Weight: 79.8 kg

DRUGS (3)
  1. DACARBAZINE [Suspect]
     Active Substance: DACARBAZINE
     Dates: end: 20240528
  2. DOXORUBICIN HYDROCHLORIDE [Suspect]
     Active Substance: DOXORUBICIN HYDROCHLORIDE
     Dates: end: 20240528
  3. VINBLASTINE SULFATE [Suspect]
     Active Substance: VINBLASTINE SULFATE
     Dates: end: 20240528

REACTIONS (8)
  - Upper respiratory tract infection [None]
  - Back pain [None]
  - Pulmonary embolism [None]
  - Headache [None]
  - Dizziness [None]
  - Vision blurred [None]
  - Cerebral haemorrhage [None]
  - Alanine aminotransferase increased [None]

NARRATIVE: CASE EVENT DATE: 20240608
